FAERS Safety Report 4392293-4 (Version None)
Quarter: 2004Q3

REPORT INFORMATION
  Report Type: 
  Country: None (occurrence: None)
  Receive Date: 20040702
  Receipt Date: 20040621
  Transmission Date: 20050211
  Serious: Yes (Death)
  Sender: FDA-Public Use
  Company Number: 2004025563

PATIENT
  Age: 40 Year
  Sex: Female

DRUGS (3)
  1. ZOLOFT [Suspect]
     Indication: ILL-DEFINED DISORDER
  2. METHADONE HCL [Suspect]
     Indication: ILL-DEFINED DISORDER
     Dosage: 100 MG
     Dates: end: 20030428
  3. ALPRAZOLAM [Suspect]
     Indication: ILL-DEFINED DISORDER

REACTIONS (3)
  - DRUG TOXICITY [None]
  - OVERDOSE [None]
  - VICTIM OF CRIME [None]
